FAERS Safety Report 7424744 (Version 8)
Quarter: 2013Q3

REPORT INFORMATION
  Report Type: Spontaneous
  Country: US (occurrence: US)
  Receive Date: 20100618
  Receipt Date: 20130711
  Transmission Date: 20140515
  Serious: Yes (Hospitalization, Other)
  Sender: FDA-Public Use
  Company Number: US-ROCHE-686350

PATIENT
  Age: 17 Year
  Sex: Male
  Weight: 74.8 kg

DRUGS (5)
  1. ACCUTANE [Suspect]
     Indication: ACNE
     Route: 048
     Dates: start: 20020104, end: 20020504
  2. ACCUTANE [Suspect]
     Dosage: FORM TABLET.
     Route: 048
     Dates: start: 20040305, end: 20040725
  3. AMNESTEEM [Suspect]
     Indication: ACNE
     Route: 048
     Dates: start: 20040305, end: 20040705
  4. CLARAVIS [Suspect]
     Indication: ACNE
     Route: 048
     Dates: start: 20040629, end: 20040729
  5. ERY-TAB [Concomitant]

REACTIONS (10)
  - Crohn^s disease [Not Recovered/Not Resolved]
  - Inflammatory bowel disease [Not Recovered/Not Resolved]
  - Intestinal haemorrhage [Unknown]
  - Colitis ulcerative [Unknown]
  - Intestinal obstruction [Not Recovered/Not Resolved]
  - Blood triglycerides increased [Unknown]
  - Dry skin [Unknown]
  - Lip dry [Unknown]
  - Chapped lips [Unknown]
  - Tooth extraction [Recovered/Resolved]
